FAERS Safety Report 6145840-6 (Version None)
Quarter: 2009Q2

REPORT INFORMATION
  Report Type: 
  Country: None (occurrence: None)
  Receive Date: 20090407
  Receipt Date: 20090327
  Transmission Date: 20091009
  Serious: Yes (Other)
  Sender: FDA-Public Use
  Company Number: US-BAYER-200914892NA

PATIENT
  Age: 27 Year
  Sex: Female
  Weight: 73 kg

DRUGS (1)
  1. YAZ [Suspect]
     Indication: CONTRACEPTION
     Route: 048
     Dates: start: 20081201, end: 20090228

REACTIONS (9)
  - ANGER [None]
  - ANXIETY [None]
  - DEPRESSION [None]
  - LIBIDO DECREASED [None]
  - MOOD SWINGS [None]
  - PREMENSTRUAL SYNDROME [None]
  - PSYCHOTIC DISORDER [None]
  - VAGINAL HAEMORRHAGE [None]
  - WEIGHT INCREASED [None]
